FAERS Safety Report 5131608-6 (Version None)
Quarter: 2006Q4

REPORT INFORMATION
  Report Type: 
  Country: None (occurrence: None)
  Receive Date: 20061016
  Receipt Date: 20061005
  Transmission Date: 20070319
  Serious: Yes (Other)
  Sender: FDA-Public Use
  Company Number: 148328ISR

PATIENT
  Age: 33 Year
  Sex: Female

DRUGS (2)
  1. PREDNISOLONE [Suspect]
  2. PIOGLITAZONE HCL [Suspect]

REACTIONS (4)
  - MACULAR OEDEMA [None]
  - MACULOPATHY [None]
  - RETINAL ANEURYSM [None]
  - RETINAL EXUDATES [None]
